FAERS Safety Report 5108733-9 (Version None)
Quarter: 2006Q3

REPORT INFORMATION
  Report Type: 
  Country: None (occurrence: None)
  Receive Date: 20060914
  Receipt Date: 20060914
  Transmission Date: 20061208
  Serious: Yes (Hospitalization)
  Sender: FDA-Public Use
  Company Number: None

PATIENT
  Sex: Male
  Weight: 31.7518 kg

DRUGS (1)
  1. LAMICTAL [Suspect]
     Indication: ABNORMAL BEHAVIOUR
     Dosage: 25 MG
     Dates: start: 20060726, end: 20060819

REACTIONS (1)
  - STEVENS-JOHNSON SYNDROME [None]
